FAERS Safety Report 21456329 (Version 1)
Quarter: 2022Q4

REPORT INFORMATION
  Report Type: Other
  Country: LB (occurrence: LB)
  Receive Date: 20221014
  Receipt Date: 20221014
  Transmission Date: 20230112
  Serious: Yes (Life-Threatening, Hospitalization)
  Sender: FDA-Public Use
  Company Number: LB-ALVOGEN-2022088485

PATIENT
  Age: 72 Year
  Sex: Female

DRUGS (5)
  1. DOXORUBICIN [Suspect]
     Active Substance: DOXORUBICIN
     Indication: Angioimmunoblastic T-cell lymphoma stage II
     Dosage: FIRST SESSION
  2. RITUXIMAB [Concomitant]
     Active Substance: RITUXIMAB
     Indication: Angioimmunoblastic T-cell lymphoma stage II
  3. CYCLOPHOSPHAMIDE [Concomitant]
     Active Substance: CYCLOPHOSPHAMIDE
     Indication: Angioimmunoblastic T-cell lymphoma stage II
  4. VINCRISTINE [Concomitant]
     Active Substance: VINCRISTINE
     Indication: Angioimmunoblastic T-cell lymphoma stage II
  5. PREDNISONE [Concomitant]
     Active Substance: PREDNISONE
     Indication: Angioimmunoblastic T-cell lymphoma stage II

REACTIONS (4)
  - Cardiomyopathy [Recovering/Resolving]
  - Cardiac failure congestive [Recovering/Resolving]
  - Respiratory failure [Recovering/Resolving]
  - Pulmonary oedema [Recovering/Resolving]
